FAERS Safety Report 16527657 (Version 1)
Quarter: 2019Q3

REPORT INFORMATION
  Report Type: Spontaneous
  Country: PT (occurrence: PT)
  Receive Date: 20190703
  Receipt Date: 20190703
  Transmission Date: 20191004
  Serious: Yes (Death, Hospitalization, Other)
  Sender: FDA-Public Use
  Company Number: PT-MYLANLABS-2019M1058235

PATIENT
  Age: 80 Year
  Sex: Female

DRUGS (2)
  1. QUETIAPINE. [Suspect]
     Active Substance: QUETIAPINE
     Indication: DEPRESSION
     Dosage: 200 MILLIGRAM, QD (200 MG, ID)
     Route: 065
  2. QUETIAPINE. [Suspect]
     Active Substance: QUETIAPINE
     Indication: PARKINSON^S DISEASE

REACTIONS (18)
  - Dyspnoea [Fatal]
  - Respiratory failure [Fatal]
  - Rhabdomyolysis [Fatal]
  - Cardiac murmur [Fatal]
  - Hypernatraemia [Fatal]
  - Metabolic acidosis [Fatal]
  - Tachypnoea [Fatal]
  - Body temperature increased [Fatal]
  - Troponin increased [Recovering/Resolving]
  - Neuroleptic malignant syndrome [Fatal]
  - Blood urea increased [Fatal]
  - Breast engorgement [Fatal]
  - Tremor [Fatal]
  - Hyperhidrosis [Fatal]
  - Chest pain [Fatal]
  - Cardiomegaly [Fatal]
  - Hyperlactacidaemia [Fatal]
  - Abdominal discomfort [Fatal]
